FAERS Safety Report 23555924 (Version 3)
Quarter: 2024Q2

REPORT INFORMATION
  Report Type: Report from Study
  Country: CA (occurrence: CA)
  Receive Date: 20240222
  Receipt Date: 20240521
  Transmission Date: 20240716
  Serious: Yes (Other)
  Sender: FDA-Public Use
  Company Number: CA-JNJFOC-20240231190

PATIENT
  Age: 40 Year
  Sex: Female
  Weight: 96.248 kg

DRUGS (1)
  1. SIMPONI [Suspect]
     Active Substance: GOLIMUMAB
     Indication: Crohn^s disease
     Route: 058
     Dates: start: 20240207

REACTIONS (7)
  - Ovarian cyst [Unknown]
  - Haemorrhage [Unknown]
  - Thyroid disorder [Unknown]
  - Oral herpes [Unknown]
  - Decreased appetite [Unknown]
  - Heavy menstrual bleeding [Unknown]
  - Hidradenitis [Unknown]
